FAERS Safety Report 8818816 (Version 1)
Quarter: 2012Q4

REPORT INFORMATION
  Report Type: Spontaneous
  Country: US (occurrence: None)
  Receive Date: 20121004
  Receipt Date: 20121004
  Transmission Date: 20130627
  Serious: No
  Sender: FDA-Public Use
  Company Number: None

PATIENT
  Age: 43 Year
  Sex: Male
  Weight: 72.58 kg

DRUGS (1)
  1. FABRAZYME [Suspect]
     Indication: FABRY^S DISEASE
     Route: 042
     Dates: start: 20110511, end: 20121002

REACTIONS (5)
  - Blood pressure decreased [None]
  - Blood pressure fluctuation [None]
  - Chills [None]
  - Chills [None]
  - Pyrexia [None]
